FAERS Safety Report 10652864 (Version 2)
Quarter: 2014Q4

REPORT INFORMATION
  Report Type: Spontaneous
  Country: JP (occurrence: JP)
  Receive Date: 20141215
  Receipt Date: 20141219
  Transmission Date: 20150529
  Serious: Yes (Other)
  Sender: FDA-Public Use
  Company Number: JP-PFIZER INC-2014337756

PATIENT
  Age: 5 Decade
  Sex: Male

DRUGS (1)
  1. REVATIO [Suspect]
     Active Substance: SILDENAFIL CITRATE
     Route: 048

REACTIONS (2)
  - Pneumocystis jirovecii pneumonia [Unknown]
  - Pulmonary hypertension [Unknown]
